FAERS Safety Report 9484785 (Version 14)
Quarter: 2014Q3

REPORT INFORMATION
  Report Type: Spontaneous
  Country: US (occurrence: US)
  Receive Date: 20130828
  Receipt Date: 20140702
  Transmission Date: 20150326
  Serious: Yes (Death, Hospitalization)
  Sender: FDA-Public Use
  Company Number: US-GLAXOSMITHKLINE-A1039392A

PATIENT
  Age: 40 Year
  Sex: Female

DRUGS (3)
  1. WARFARIN [Concomitant]
     Active Substance: WARFARIN
  2. FLOLAN [Suspect]
     Active Substance: EPOPROSTENOL SODIUM
     Indication: PULMONARY ARTERIAL HYPERTENSION
     Dosage: 8.32NGKM CONTINUOUS
     Route: 042
     Dates: start: 20130820
  3. TRACLEER [Concomitant]
     Active Substance: BOSENTAN\BOSENTAN MONOHYDRATE

REACTIONS (14)
  - Lung disorder [Unknown]
  - Catheter site discharge [Unknown]
  - Fluid overload [Unknown]
  - Pulmonary hypertension [Not Recovered/Not Resolved]
  - Pleural effusion [Unknown]
  - Catheter site pain [Unknown]
  - Adverse event [Unknown]
  - Application site irritation [Unknown]
  - Device related infection [Unknown]
  - Fluid retention [Unknown]
  - Dyspnoea [Unknown]
  - Nausea [Unknown]
  - Ascites [Unknown]
  - Death [Fatal]

NARRATIVE: CASE EVENT DATE: 201309
